FAERS Safety Report 7170591-9 (Version None)
Quarter: 2010Q4

REPORT INFORMATION
  Report Type: 
  Country: None (occurrence: None)
  Receive Date: 20101217
  Receipt Date: 20101215
  Transmission Date: 20110411
  Serious: Yes (Hospitalization)
  Sender: FDA-Public Use
  Company Number: A0799747A

PATIENT
  Sex: Female

DRUGS (3)
  1. TYKERB [Suspect]
     Dosage: 1250MG PER DAY
     Route: 048
     Dates: start: 20090722
  2. DEXAMETHASONE [Suspect]
     Route: 065
  3. XELODA [Concomitant]
     Route: 065

REACTIONS (10)
  - CHEILITIS [None]
  - CONDITION AGGRAVATED [None]
  - DEHYDRATION [None]
  - DIARRHOEA [None]
  - DYSGEUSIA [None]
  - INCREASED APPETITE [None]
  - RASH [None]
  - SKIN ULCER [None]
  - THERMAL BURN [None]
  - VOMITING [None]
